FAERS Safety Report 7002505-6 (Version None)
Quarter: 2010Q3

REPORT INFORMATION
  Report Type: 
  Country: None (occurrence: None)
  Receive Date: 20100920
  Receipt Date: 20091008
  Transmission Date: 20110219
  Serious: Yes (Other)
  Sender: FDA-Public Use
  Company Number: US-ASTRAZENECA-2009UW09196

PATIENT
  Age: 47 Year
  Sex: Male

DRUGS (3)
  1. SEROQUEL [Suspect]
     Indication: BIPOLAR DISORDER
     Dosage: 100 MG TO 600 MG PER DAY
     Route: 048
     Dates: start: 20010101, end: 20080101
  2. SEROQUEL [Suspect]
     Indication: SCHIZOPHRENIA
     Dosage: 100 MG TO 600 MG PER DAY
     Route: 048
     Dates: start: 20010101, end: 20080101
  3. SEROQUEL [Suspect]
     Indication: MANIA
     Dosage: 100 MG TO 600 MG PER DAY
     Route: 048
     Dates: start: 20010101, end: 20080101

REACTIONS (1)
  - PANCREATITIS ACUTE [None]
